FAERS Safety Report 25360978 (Version 1)
Quarter: 2025Q2

REPORT INFORMATION
  Report Type: Spontaneous
  Country: FR (occurrence: FR)
  Receive Date: 20250527
  Receipt Date: 20250527
  Transmission Date: 20250717
  Serious: Yes (Hospitalization)
  Sender: RANBAXY
  Company Number: FR-AFSSAPS-AM2025000103

PATIENT
  Age: 71 Year
  Sex: Male
  Weight: 85 kg

DRUGS (8)
  1. CEFTRIAXONE [Suspect]
     Active Substance: CEFTRIAXONE
     Indication: Product used for unknown indication
     Dosage: 1 GRAM, DAILY
     Route: 040
     Dates: start: 20230701, end: 20230705
  2. REPAGLINIDE [Suspect]
     Active Substance: REPAGLINIDE
     Indication: Product used for unknown indication
     Dosage: 0.5 MILLIGRAM, DAILY
     Route: 048
     Dates: start: 20220715, end: 20230707
  3. TIAPRIDE [Suspect]
     Active Substance: TIAPRIDE
     Indication: Aggression
     Dosage: 600 MILLIGRAM, DAILY
     Route: 048
     Dates: start: 20230615, end: 20230705
  4. DIAZEPAM [Suspect]
     Active Substance: DIAZEPAM
     Indication: Prophylaxis against alcoholic withdrawal syndrome
     Dosage: 40 MILLIGRAM, DAILY
     Route: 048
     Dates: start: 20230525, end: 20230705
  5. OXAZEPAM [Suspect]
     Active Substance: OXAZEPAM
     Indication: Prophylaxis against alcoholic withdrawal syndrome
     Dosage: 100 MILLIGRAM, DAILY
     Route: 048
     Dates: start: 20230418, end: 20230707
  6. GLICLAZIDE [Suspect]
     Active Substance: GLICLAZIDE
     Indication: Type 2 diabetes mellitus
     Dosage: 80 MILLIGRAM, DAILY
     Route: 048
     Dates: start: 20220715, end: 20230707
  7. FUROSEMIDE [Concomitant]
     Active Substance: FUROSEMIDE
     Indication: Product used for unknown indication
     Route: 065
  8. ENOXAPARIN [Concomitant]
     Active Substance: ENOXAPARIN
     Indication: Product used for unknown indication
     Route: 065

REACTIONS (2)
  - Confusional state [Recovered/Resolved]
  - Urinary retention [Recovered/Resolved]

NARRATIVE: CASE EVENT DATE: 20230701
